FAERS Safety Report 5922638-2 (Version None)
Quarter: 2008Q3

REPORT INFORMATION
  Report Type: 
  Country: None (occurrence: None)
  Receive Date: 20080924
  Receipt Date: 20080912
  Transmission Date: 20090109
  Serious: Yes (Other)
  Sender: FDA-Public Use
  Company Number: WSDF_00734

PATIENT
  Age: 74 Year
  Sex: Female
  Weight: 79.5 kg

DRUGS (12)
  1. WINRHO SDF [Suspect]
     Indication: IDIOPATHIC THROMBOCYTOPENIC PURPURA
     Dosage: 50.3 UG/KG ONCE
     Dates: start: 20070112, end: 20070112
  2. ALLEGRA [Concomitant]
  3. MINOCYCLINE HCL [Concomitant]
  4. METOPROLOL TARTRATE [Concomitant]
  5. LISINOPRIL [Concomitant]
  6. ATIVAN [Concomitant]
  7. MECLIZINE [Concomitant]
  8. GLYBURIDE [Concomitant]
  9. PREMARIN [Concomitant]
  10. LEVOXYL [Concomitant]
  11. NORITATE [Concomitant]
  12. NEXIUM [Concomitant]

REACTIONS (13)
  - ASPARTATE AMINOTRANSFERASE INCREASED [None]
  - BLOOD ALBUMIN DECREASED [None]
  - CHILLS [None]
  - CONFUSIONAL STATE [None]
  - DIARRHOEA [None]
  - INTRAVASCULAR HAEMOLYSIS [None]
  - NAUSEA [None]
  - NEUROLOGICAL SYMPTOM [None]
  - PLATELET COUNT DECREASED [None]
  - REFUSAL OF TREATMENT BY PATIENT [None]
  - RESPIRATORY DISTRESS [None]
  - VOMITING [None]
  - WHITE BLOOD CELL COUNT DECREASED [None]
